FAERS Safety Report 20818838 (Version 1)
Quarter: 2022Q2

REPORT INFORMATION
  Report Type: Spontaneous
  Country: US (occurrence: US)
  Receive Date: 20220512
  Receipt Date: 20220512
  Transmission Date: 20220721
  Serious: Yes (Hospitalization, Other)
  Sender: FDA-Public Use
  Company Number: US-INDIVIOR EUROPE LIMITED-INDV-134108-2022

PATIENT
  Age: 41 Year
  Sex: Male

DRUGS (4)
  1. BUPRENORPHINE\NALOXONE [Suspect]
     Active Substance: BUPRENORPHINE\NALOXONE
     Indication: Product used for unknown indication
     Dosage: UNK
     Route: 065
  2. ESCITALOPRAM [Suspect]
     Active Substance: ESCITALOPRAM OXALATE
     Indication: Product used for unknown indication
     Dosage: UNK
     Route: 042
  3. METHYLPHENIDATE [Concomitant]
     Active Substance: METHYLPHENIDATE
     Indication: Attention deficit hyperactivity disorder
     Dosage: UNK
     Route: 042
  4. GABAPENTIN [Concomitant]
     Active Substance: GABAPENTIN
     Indication: Product used for unknown indication
     Dosage: UNK
     Route: 065

REACTIONS (13)
  - Toxic encephalopathy [Unknown]
  - Pancytopenia [Recovering/Resolving]
  - Aplastic anaemia [Recovering/Resolving]
  - Acute kidney injury [Recovered/Resolved]
  - Overdose [Unknown]
  - Haemangioma [Unknown]
  - Tachypnoea [Unknown]
  - Haematuria [Recovered/Resolved]
  - Blood pressure increased [Unknown]
  - Mydriasis [Unknown]
  - Liver function test abnormal [Unknown]
  - Intentional product use issue [Unknown]
  - Drug abuse [Unknown]
